FAERS Safety Report 8163011-9 (Version None)
Quarter: 2012Q1

REPORT INFORMATION
  Report Type: 
  Country: None (occurrence: None)
  Receive Date: 20120224
  Receipt Date: 20120214
  Transmission Date: 20120608
  Serious: Yes (Hospitalization, Other)
  Sender: FDA-Public Use
  Company Number: US-ALLERGAN-1116341US

PATIENT
  Age: 54 Year
  Sex: Female
  Weight: 79.819 kg

DRUGS (1)
  1. BOTOX COSMETIC [Suspect]
     Indication: SKIN WRINKLING
     Dosage: 25 UNITS, SINGLE
     Route: 030
     Dates: start: 20111020, end: 20111020

REACTIONS (7)
  - HYPERSENSITIVITY [None]
  - DYSARTHRIA [None]
  - WRONG TECHNIQUE IN DRUG USAGE PROCESS [None]
  - LOSS OF CONSCIOUSNESS [None]
  - BLOOD PRESSURE DECREASED [None]
  - FLUSHING [None]
  - PHARYNGEAL OEDEMA [None]
